FAERS Safety Report 16166770 (Version 2)
Quarter: 2019Q2

REPORT INFORMATION
  Report Type: Spontaneous
  Country: ES (occurrence: ES)
  Receive Date: 20190407
  Receipt Date: 20190416
  Transmission Date: 20190711
  Serious: Yes (Hospitalization)
  Sender: FDA-Public Use
  Company Number: ES-CELLTRION INC.-2019ES020029

PATIENT

DRUGS (1)
  1. INFLIXIMAB (UNKNOWN) [Suspect]
     Active Substance: INFLIXIMAB
     Indication: CROHN^S DISEASE
     Dosage: UNK
     Route: 065

REACTIONS (19)
  - Cough [Recovered/Resolved]
  - Pyrexia [Recovered/Resolved]
  - Hyperhidrosis [Recovered/Resolved]
  - Nasal congestion [Recovered/Resolved]
  - Pleural effusion [Recovered/Resolved]
  - Chest pain [Recovered/Resolved]
  - Pharyngitis [Recovered/Resolved]
  - Dyspnoea [Recovered/Resolved]
  - Rales [Recovered/Resolved]
  - Pneumonia [Recovered/Resolved]
  - Empyema [Recovered/Resolved]
  - Headache [Recovered/Resolved]
  - Fusobacterium infection [Recovered/Resolved]
  - Malaise [Recovered/Resolved]
  - Pneumonia bacterial [Recovered/Resolved]
  - Chills [Recovered/Resolved]
  - Rhinorrhoea [Recovered/Resolved]
  - Pallor [Recovered/Resolved]
  - Nasopharyngitis [Recovered/Resolved]
